FAERS Safety Report 12502801 (Version 1)
Quarter: 2016Q2

REPORT INFORMATION
  Report Type: Spontaneous
  Country: US (occurrence: US)
  Receive Date: 20160628
  Receipt Date: 20160628
  Transmission Date: 20160815
  Serious: Yes (Other)
  Sender: FDA-Public Use
  Company Number: US-BRISTOL-MYERS SQUIBB COMPANY-BMS-2016-050094

PATIENT
  Sex: Female

DRUGS (1)
  1. YERVOY [Suspect]
     Active Substance: IPILIMUMAB
     Indication: MALIGNANT MELANOMA
     Route: 042

REACTIONS (10)
  - Arthritis [Unknown]
  - Dysuria [Unknown]
  - Immune system disorder [Unknown]
  - Rash pruritic [Unknown]
  - Blood pressure decreased [Unknown]
  - Somnolence [Unknown]
  - Decreased appetite [Unknown]
  - Dehydration [Unknown]
  - Hypoaesthesia [Unknown]
  - Pain [Unknown]
